FAERS Safety Report 20257356 (Version 1)
Quarter: 2021Q4

REPORT INFORMATION
  Report Type: Spontaneous
  Country: CL (occurrence: CL)
  Receive Date: 20211230
  Receipt Date: 20211230
  Transmission Date: 20220304
  Serious: Yes (Death)
  Sender: FDA-Public Use
  Company Number: CL-MYLANLABS-2021M1096278

PATIENT
  Age: 37 Year
  Sex: Male

DRUGS (1)
  1. CLOZAPINE [Suspect]
     Active Substance: CLOZAPINE
     Indication: Product used for unknown indication
     Dosage: 800 MILLIGRAM, QD
     Route: 048
     Dates: start: 20101204

REACTIONS (1)
  - Death [Fatal]

NARRATIVE: CASE EVENT DATE: 20211114
